FAERS Safety Report 5877687-X (Version None)
Quarter: 2008Q3

REPORT INFORMATION
  Report Type: 
  Country: None (occurrence: None)
  Receive Date: 20080911
  Receipt Date: 20080903
  Transmission Date: 20090109
  Serious: Yes (Other)
  Sender: FDA-Public Use
  Company Number: US-WYE-H05872508

PATIENT
  Age: 77 Year
  Sex: Male
  Weight: 90.8 kg

DRUGS (1)
  1. ROBITUSSIN DM [Suspect]
     Indication: COUGH
     Dosage: TWO TEASPOONS ONCE
     Route: 048
     Dates: start: 20080830, end: 20080830

REACTIONS (3)
  - NO REACTION ON PREVIOUS EXPOSURE TO DRUG [None]
  - OEDEMA MOUTH [None]
  - SWOLLEN TONGUE [None]
